FAERS Safety Report 24400705 (Version 2)
Quarter: 2025Q2

REPORT INFORMATION
  Report Type: Spontaneous
  Country: US (occurrence: US)
  Receive Date: 20241006
  Receipt Date: 20250604
  Transmission Date: 20250716
  Serious: No
  Sender: SANOFI AVENTIS
  Company Number: US-SA-2024SA285470

PATIENT
  Age: 27 Year
  Sex: Male
  Weight: 90.05 kg

DRUGS (4)
  1. DUPIXENT [Suspect]
     Active Substance: DUPILUMAB
     Indication: Dermatitis atopic
     Dosage: 300 MG, QOW
     Route: 058
     Dates: start: 2023, end: 2025
  2. DUPIXENT [Suspect]
     Active Substance: DUPILUMAB
     Dates: start: 202502, end: 202502
  3. DUPIXENT [Suspect]
     Active Substance: DUPILUMAB
     Dosage: 300 MG, QOW
     Dates: start: 2025
  4. FLUCONAZOLE [Concomitant]
     Active Substance: FLUCONAZOLE

REACTIONS (4)
  - Exfoliative rash [Not Recovered/Not Resolved]
  - Rash pruritic [Not Recovered/Not Resolved]
  - Limb injury [Unknown]
  - Rash erythematous [Not Recovered/Not Resolved]
